FAERS Safety Report 16990700 (Version 1)
Quarter: 2019Q4

REPORT INFORMATION
  Report Type: Spontaneous
  Country: JP (occurrence: JP)
  Receive Date: 20191104
  Receipt Date: 20191104
  Transmission Date: 20200122
  Serious: Yes (Hospitalization, Other)
  Sender: FDA-Public Use
  Company Number: JP-AKRON, INC.-2076397

PATIENT
  Age: 51 Year
  Sex: Male

DRUGS (1)
  1. LORAZEPAM INJECTION CIV [Suspect]
     Active Substance: LORAZEPAM
     Indication: DEPRESSION

REACTIONS (1)
  - Drug-induced liver injury [Recovered/Resolved]
